FAERS Safety Report 12411230 (Version 1)
Quarter: 2016Q2

REPORT INFORMATION
  Report Type: Spontaneous
  Country: US (occurrence: US)
  Receive Date: 20160527
  Receipt Date: 20160527
  Transmission Date: 20160815
  Serious: No
  Sender: FDA-Public Use
  Company Number: US-BRISTOL-MYERS SQUIBB COMPANY-BMS-2016-040513

PATIENT
  Age: 49 Year
  Sex: Female
  Weight: 79.3 kg

DRUGS (1)
  1. KENALOG-40 [Suspect]
     Active Substance: TRIAMCINOLONE ACETONIDE
     Indication: ARTHRITIS
     Dosage: UNK
     Route: 065
     Dates: start: 20160512

REACTIONS (2)
  - Metrorrhagia [Unknown]
  - Muscle spasms [Unknown]

NARRATIVE: CASE EVENT DATE: 20160519
